FAERS Safety Report 6073110-3 (Version None)
Quarter: 2009Q1

REPORT INFORMATION
  Report Type: 
  Country: None (occurrence: None)
  Receive Date: 20090211
  Receipt Date: 20090130
  Transmission Date: 20090719
  Serious: Yes (Other)
  Sender: FDA-Public Use
  Company Number: CA-JNJFOC-20081104533

PATIENT
  Sex: Male
  Weight: 68 kg

DRUGS (11)
  1. REMICADE [Suspect]
     Route: 042
  2. REMICADE [Suspect]
     Indication: PSORIASIS
     Route: 042
  3. PAXIL [Concomitant]
  4. BENADRYL [Concomitant]
  5. OMEPRAZOLE [Concomitant]
  6. VITAMIN K [Concomitant]
  7. CALCIUM CITRATE [Concomitant]
  8. VENTOLIN [Concomitant]
  9. FLOVENT [Concomitant]
  10. AMLIZIDE [Concomitant]
  11. VITAMIN D [Concomitant]

REACTIONS (5)
  - DIARRHOEA [None]
  - FATIGUE [None]
  - HYPERSOMNIA [None]
  - PRURITUS [None]
  - VOMITING [None]
